FAERS Safety Report 4735198-9 (Version None)
Quarter: 2005Q3

REPORT INFORMATION
  Report Type: 
  Country: None (occurrence: None)
  Receive Date: 20050804
  Receipt Date: 20050714
  Transmission Date: 20060218
  Serious: Yes (Hospitalization)
  Sender: FDA-Public Use
  Company Number: US_0408105022

PATIENT
  Age: 77 Year
  Sex: Male
  Weight: 60 kg

DRUGS (10)
  1. PEMETREXED [Suspect]
     Indication: NON-SMALL CELL LUNG CANCER
     Dosage: 500 MG/M2
     Dates: start: 20040802, end: 20040830
  2. CARBOPLATIN [Suspect]
     Indication: NON-SMALL CELL LUNG CANCER
     Dosage: 510 MG
     Dates: start: 20040802, end: 20040830
  3. RADIATION [Suspect]
     Indication: NON-SMALL CELL LUNG CANCER
     Dates: start: 20040802, end: 20040917
  4. FOLIC ACID [Concomitant]
  5. MEVACOR [Concomitant]
  6. ASPIRIN [Concomitant]
  7. VITAMIN B-12 [Concomitant]
  8. SOTALOL HCL [Concomitant]
  9. COUMADIN [Concomitant]
  10. DOCETAXEL [Concomitant]

REACTIONS (17)
  - ACTIVATED PARTIAL THROMBOPLASTIN TIME PROLONGED [None]
  - ATELECTASIS [None]
  - ATRIAL FLUTTER [None]
  - BLOOD PRESSURE DECREASED [None]
  - CACHEXIA [None]
  - EMPHYSEMA [None]
  - HAEMATOCRIT DECREASED [None]
  - HAEMOGLOBIN DECREASED [None]
  - LUNG CONSOLIDATION [None]
  - LUNG INFECTION [None]
  - PLATELET COUNT DECREASED [None]
  - PLEURAL FIBROSIS [None]
  - PROTHROMBIN TIME PROLONGED [None]
  - RADIATION PNEUMONITIS [None]
  - SINUS BRADYCARDIA [None]
  - SYNCOPE [None]
  - THERAPY NON-RESPONDER [None]
